FAERS Safety Report 18647102 (Version 1)
Quarter: 2020Q4

REPORT INFORMATION
  Report Type: Report from Study
  Country: None (occurrence: US)
  Receive Date: 20201221
  Receipt Date: 20201221
  Transmission Date: 20210114
  Serious: Yes (Hospitalization)
  Sender: FDA-Public Use
  Company Number: US-ABBVIE-20K-163-3697516-00

PATIENT
  Age: 61 Year
  Sex: Male
  Weight: 74.91 kg

DRUGS (1)
  1. HUMIRA [Suspect]
     Active Substance: ADALIMUMAB
     Indication: ANKYLOSING SPONDYLITIS
     Route: 058
     Dates: start: 2016, end: 202003

REACTIONS (3)
  - Multiple organ dysfunction syndrome [Recovering/Resolving]
  - Near death experience [Unknown]
  - Histoplasmosis disseminated [Recovering/Resolving]

NARRATIVE: CASE EVENT DATE: 202003
